FAERS Safety Report 17559979 (Version 1)
Quarter: 2020Q1

REPORT INFORMATION
  Report Type: Spontaneous
  Country: US (occurrence: US)
  Receive Date: 20200318
  Receipt Date: 20200318
  Transmission Date: 20200409
  Serious: Yes (Death)
  Sender: FDA-Public Use
  Company Number: None

PATIENT
  Age: 55 Year
  Sex: Female

DRUGS (6)
  1. SCOPOLAMIDE [Concomitant]
  2. CYANOCOBALAM [Suspect]
     Active Substance: CYANOCOBALAMIN
     Indication: OVARIAN CANCER
     Dosage: ?          OTHER FREQUENCY:EVERY MONTH;?
     Route: 058
     Dates: start: 20200205
  3. FENTANYL. [Concomitant]
     Active Substance: FENTANYL
  4. ODANSETERON [Concomitant]
  5. BENZONATE [Concomitant]
     Active Substance: BENZONATATE
  6. ENOXAPARIN [Concomitant]
     Active Substance: ENOXAPARIN

REACTIONS (1)
  - Death [None]

NARRATIVE: CASE EVENT DATE: 20200302
